FAERS Safety Report 15038199 (Version 1)
Quarter: 2018Q2

REPORT INFORMATION
  Report Type: Spontaneous
  Country: US (occurrence: US)
  Receive Date: 20180620
  Receipt Date: 20180620
  Transmission Date: 20180711
  Serious: Yes (Disabling, Other)
  Sender: FDA-Public Use
  Company Number: US-OTSUKA-2018_010458

PATIENT
  Sex: Female

DRUGS (2)
  1. ABILIFY [Suspect]
     Active Substance: ARIPIPRAZOLE
     Indication: ANXIETY
     Dosage: 2MG, 5MG AND 10MG, QD
     Route: 065
  2. ABILIFY [Suspect]
     Active Substance: ARIPIPRAZOLE
     Indication: BIPOLAR DISORDER
     Dosage: 2MG, 5MG AND 10MG, QD
     Route: 065
     Dates: start: 2005

REACTIONS (13)
  - Compulsive shopping [Recovered/Resolved]
  - Disability [Unknown]
  - Anhedonia [Unknown]
  - Obsessive-compulsive disorder [Recovered/Resolved]
  - Injury [Unknown]
  - Gambling disorder [Recovered/Resolved]
  - Anxiety [Unknown]
  - Suicide attempt [Recovered/Resolved]
  - Condition aggravated [Unknown]
  - Suicidal ideation [Recovered/Resolved]
  - Pain [Unknown]
  - Economic problem [Unknown]
  - Product use in unapproved indication [Unknown]

NARRATIVE: CASE EVENT DATE: 2005
